FAERS Safety Report 6902864-6 (Version None)
Quarter: 2010Q3

REPORT INFORMATION
  Report Type: 
  Country: None (occurrence: None)
  Receive Date: 20100803
  Receipt Date: 20080715
  Transmission Date: 20110219
  Serious: Yes (Other)
  Sender: FDA-Public Use
  Company Number: US-PFIZER INC-2008059739

PATIENT
  Age: 49 Year
  Sex: Male
  Weight: 113.63 kg

DRUGS (1)
  1. LYRICA [Suspect]
     Indication: BACK PAIN

REACTIONS (5)
  - AMNESIA [None]
  - DISTURBANCE IN ATTENTION [None]
  - MYALGIA [None]
  - NIGHTMARE [None]
  - WEIGHT DECREASED [None]
